FAERS Safety Report 16673493 (Version 1)
Quarter: 2019Q3

REPORT INFORMATION
  Report Type: Spontaneous
  Country: US (occurrence: US)
  Receive Date: 20190806
  Receipt Date: 20190806
  Transmission Date: 20191004
  Serious: Yes (Other)
  Sender: FDA-Public Use
  Company Number: US-SA-2019SA212624

PATIENT
  Age: 16 Year
  Sex: Male

DRUGS (1)
  1. DUPIXENT [Suspect]
     Active Substance: DUPILUMAB
     Indication: ECZEMA
     Dosage: 600 MG, 1X
     Dates: start: 20190720, end: 20190720

REACTIONS (8)
  - Oropharyngeal blistering [Unknown]
  - Lymphadenopathy [Unknown]
  - Pyrexia [Unknown]
  - Dizziness [Unknown]
  - Lip blister [Unknown]
  - Pain [Unknown]
  - Oropharyngeal pain [Unknown]
  - Chills [Unknown]

NARRATIVE: CASE EVENT DATE: 20190728
